FAERS Safety Report 17904882 (Version 2)
Quarter: 2021Q2

REPORT INFORMATION
  Report Type: Spontaneous
  Country: CA (occurrence: CA)
  Receive Date: 20200617
  Receipt Date: 20210531
  Transmission Date: 20210717
  Serious: Yes (Hospitalization, Other)
  Sender: FDA-Public Use
  Company Number: CA-GLAXOSMITHKLINE-CA2020AMR098261

PATIENT
  Age: 45 Year
  Sex: Male

DRUGS (2)
  1. LAMOTRIGINE. [Suspect]
     Active Substance: LAMOTRIGINE
     Indication: GLIOMA
     Dosage: 100 MG, BID
     Route: 048
  2. TEMOZOLOMIDE. [Concomitant]
     Active Substance: TEMOZOLOMIDE
     Indication: PRODUCT USED FOR UNKNOWN INDICATION
     Dosage: UNK

REACTIONS (7)
  - Chills [Unknown]
  - Pyrexia [Unknown]
  - Erythema [Unknown]
  - Stevens-Johnson syndrome [Unknown]
  - Malaise [Unknown]
  - Skin exfoliation [Unknown]
  - Productive cough [Unknown]
